FAERS Safety Report 11792191 (Version 1)
Quarter: 2015Q4

REPORT INFORMATION
  Report Type: Spontaneous
  Country: US (occurrence: US)
  Receive Date: 20151201
  Receipt Date: 20151201
  Transmission Date: 20160305
  Serious: Yes (Death)
  Sender: FDA-Public Use
  Company Number: US-CELGENE-USA-2015116410

PATIENT

DRUGS (2)
  1. BIRINAPANT [Suspect]
     Active Substance: BIRINAPANT
     Indication: MYELODYSPLASTIC SYNDROME
     Route: 041
  2. AZACITIDINE INJECTABLE [Suspect]
     Active Substance: AZACITIDINE
     Indication: MYELODYSPLASTIC SYNDROME
     Dosage: 75 MILLIGRAM/SQ. METER
     Route: 041

REACTIONS (1)
  - Sepsis [Fatal]
